FAERS Safety Report 9817747 (Version 3)
Quarter: 2022Q2

REPORT INFORMATION
  Report Type: Other
  Country: US (occurrence: None)
  Receive Date: 20140115
  Receipt Date: 20220408
  Transmission Date: 20220721
  Serious: Yes (Hospitalization, Other)
  Sender: FDA-Public Use
  Company Number: US-ROCHE-1330462

PATIENT
  Sex: Female
  Weight: 52.210 kg

DRUGS (42)
  1. RITUXAN [Suspect]
     Active Substance: RITUXIMAB
     Indication: Neuromyelitis optica spectrum disorder
     Route: 041
     Dates: start: 20080312
  2. RITUXAN [Suspect]
     Active Substance: RITUXIMAB
     Route: 041
     Dates: start: 20081211
  3. CELLCEPT [Suspect]
     Active Substance: MYCOPHENOLATE MOFETIL
     Indication: Neuromyelitis optica spectrum disorder
     Route: 048
     Dates: start: 2001, end: 2014
  4. CELLCEPT [Suspect]
     Active Substance: MYCOPHENOLATE MOFETIL
     Route: 048
     Dates: start: 2001, end: 2014
  5. GAMUNEX [Concomitant]
     Active Substance: HUMAN IMMUNOGLOBULIN G
     Dosage: 1 INFUSION EVERY OTHER DAY 3 TIMES THEN 1 INFUSION
     Route: 042
  6. ERGOCALCIFEROL [Concomitant]
     Active Substance: ERGOCALCIFEROL
     Dosage: 1 CAPSULE EVERY 7 DAYS
     Route: 048
  7. LEVOTHYROXINE [Concomitant]
     Active Substance: LEVOTHYROXINE
     Dosage: 1 TABLET DAILY BEFORE BREAKFAST
     Route: 048
  8. NORVASC [Concomitant]
     Active Substance: AMLODIPINE BESYLATE
     Dosage: 1 TABLET DAILY
     Route: 048
  9. ANALPRAM-HC [Concomitant]
     Dosage: 2.5 -1 %, INSERT ONE APPLICATION INTO RECTUM 4 TIMES PER DAY
     Route: 054
  10. NEXIUM [Concomitant]
     Active Substance: ESOMEPRAZOLE MAGNESIUM
     Dosage: 1 CAPSULE TWICE A DAY.
     Route: 048
  11. EFFEXOR XR [Concomitant]
     Active Substance: VENLAFAXINE HYDROCHLORIDE
     Dosage: 1 CAPSULE DAILY WITH BREAKFAST
     Route: 048
  12. K-TAB [Concomitant]
     Active Substance: POTASSIUM CHLORIDE
     Dosage: 2 TABS DAILY
     Route: 048
  13. CARBAMAZEPINE [Concomitant]
     Active Substance: CARBAMAZEPINE
     Route: 048
  14. VALTREX [Concomitant]
     Active Substance: VALACYCLOVIR HYDROCHLORIDE
     Dosage: 1 TAB BY MOUTH ONCE A DAY
     Route: 048
  15. EVOXAC [Concomitant]
     Active Substance: CEVIMELINE HYDROCHLORIDE
     Route: 048
  16. MIRALAX [Concomitant]
     Active Substance: POLYETHYLENE GLYCOL 3350
     Dosage: PO PACK. TAKE 1 EACH BY MOUTH TWO TIMES PER DAY.
     Route: 048
  17. BENADRYL [Concomitant]
     Active Substance: DIPHENHYDRAMINE HYDROCHLORIDE
  18. TYLENOL [Concomitant]
     Active Substance: ACETAMINOPHEN
  19. SOLU-MEDROL [Concomitant]
     Active Substance: METHYLPREDNISOLONE SODIUM SUCCINATE
  20. PREDNISONE [Concomitant]
     Active Substance: PREDNISONE
     Indication: Neuromyelitis optica spectrum disorder
     Route: 048
  21. PREDNISONE [Concomitant]
     Active Substance: PREDNISONE
     Route: 048
  22. PREDNISONE [Concomitant]
     Active Substance: PREDNISONE
     Dosage: FOR 3 DAYS
     Route: 048
  23. PREDNISONE [Concomitant]
     Active Substance: PREDNISONE
     Dosage: FOR 4 DAYS
     Route: 048
  24. AMITRIPTYLINE [Concomitant]
     Active Substance: AMITRIPTYLINE
     Dosage: TAKE 2 TABLETS EVERY NIGHT AT BEDTIME
     Route: 048
  25. SYNTHROID [Concomitant]
     Active Substance: LEVOTHYROXINE SODIUM
  26. TETRACYCLINE [Concomitant]
     Active Substance: TETRACYCLINE
  27. CEVIMELINE [Concomitant]
     Active Substance: CEVIMELINE
  28. CLOBETASOL [Concomitant]
     Active Substance: CLOBETASOL
  29. DENAVIR [Concomitant]
     Active Substance: PENCICLOVIR
  30. DOXYCYCLINE [Concomitant]
     Active Substance: DOXYCYCLINE
  31. ESOMEPRAZOLE [Concomitant]
     Active Substance: ESOMEPRAZOLE
  32. ESTRADIOL [Concomitant]
     Active Substance: ESTRADIOL
  33. FOLIC ACID [Concomitant]
     Active Substance: FOLIC ACID
  34. GLIMEPIRIDE [Concomitant]
     Active Substance: GLIMEPIRIDE
  35. HYDROCODONE [Concomitant]
     Active Substance: HYDROCODONE
  36. ACETAMINOPHEN [Concomitant]
     Active Substance: ACETAMINOPHEN
  37. HYDROCORTISONE [Concomitant]
     Active Substance: HYDROCORTISONE
  38. LOSARTAN [Concomitant]
     Active Substance: LOSARTAN
  39. METFORMIN [Concomitant]
     Active Substance: METFORMIN HYDROCHLORIDE
  40. OMEPRAZOLE [Concomitant]
     Active Substance: OMEPRAZOLE
  41. POTASSIUM CHLORIDE [Concomitant]
     Active Substance: POTASSIUM CHLORIDE
  42. SATRALIZUMAB [Concomitant]
     Active Substance: SATRALIZUMAB

REACTIONS (24)
  - Neuromyelitis optica spectrum disorder [Unknown]
  - Blindness [Not Recovered/Not Resolved]
  - Dysarthria [Unknown]
  - Neuromyelitis optica spectrum disorder [Unknown]
  - Blindness unilateral [Unknown]
  - Constipation [Unknown]
  - Renal cyst [Unknown]
  - Flatulence [Unknown]
  - Eructation [Unknown]
  - Fatigue [Unknown]
  - Viral test positive [Not Recovered/Not Resolved]
  - Speech disorder [Unknown]
  - Hypoaesthesia [Unknown]
  - Visual impairment [Unknown]
  - Neurological examination abnormal [Unknown]
  - Anaemia [Unknown]
  - Helicobacter infection [Unknown]
  - Urinary tract infection [Unknown]
  - Dysphagia [Unknown]
  - Drug hypersensitivity [Unknown]
  - Immunosuppression [Not Recovered/Not Resolved]
  - Hypogammaglobulinaemia [Not Recovered/Not Resolved]
  - Eating disorder [Unknown]
  - Off label use [Unknown]

NARRATIVE: CASE EVENT DATE: 20010101
